FAERS Safety Report 7248746-4 (Version None)
Quarter: 2011Q1

REPORT INFORMATION
  Report Type: 
  Country: None (occurrence: None)
  Receive Date: 20110128
  Receipt Date: 20101021
  Transmission Date: 20110831
  Serious: Yes (Other)
  Sender: FDA-Public Use
  Company Number: US-BAYER-201016000NA

PATIENT
  Sex: Female
  Weight: 112.93 kg

DRUGS (6)
  1. BENTYL [Concomitant]
     Dosage: UNK
     Dates: start: 20030930
  2. IBUPROFEN [Concomitant]
     Dosage: 400 MG, UNK
     Dates: start: 20030925
  3. YASMIN [Suspect]
     Indication: CONTRACEPTION
     Route: 048
     Dates: start: 20010101, end: 20060101
  4. TYLENOL W/ CODEINE NO. 3 [Concomitant]
     Dosage: UNK
     Dates: start: 20030930
  5. YAZ [Suspect]
     Indication: PRODUCT USED FOR UNKNOWN INDICATION
  6. ADVIL [Concomitant]
     Dosage: AS NEEDED

REACTIONS (3)
  - CHOLELITHIASIS [None]
  - BILIARY COLIC [None]
  - CHOLECYSTITIS CHRONIC [None]
